FAERS Safety Report 7428561-9 (Version None)
Quarter: 2011Q2

REPORT INFORMATION
  Report Type: 
  Country: None (occurrence: None)
  Receive Date: 20110415
  Receipt Date: 20110415
  Transmission Date: 20111010
  Serious: Yes (Hospitalization)
  Sender: FDA-Public Use
  Company Number: None

PATIENT
  Age: 75 Year
  Sex: Male
  Weight: 85.2762 kg

DRUGS (12)
  1. OXYBUTYNIN [Concomitant]
  2. LOPRESSOR [Concomitant]
  3. GLYBURIDE [Concomitant]
  4. ACTOS [Concomitant]
  5. PLENDIL [Concomitant]
  6. LIPITOR [Concomitant]
  7. CIPROFLOXACIN [Concomitant]
  8. EXELON [Concomitant]
  9. NAMENDA [Concomitant]
  10. DECITABINE [Suspect]
     Indication: MYELODYSPLASTIC SYNDROME
     Dosage: 0.2MG/KG SQ
     Route: 058
     Dates: start: 20110124
  11. NEXIUM [Concomitant]
  12. NITRO SUBLINGUAL [Concomitant]

REACTIONS (1)
  - FEBRILE NEUTROPENIA [None]
